FAERS Safety Report 8602867-X (Version None)
Quarter: 2012Q3

REPORT INFORMATION
  Report Type: 
  Country: None (occurrence: None)
  Receive Date: 20120817
  Receipt Date: 20120808
  Transmission Date: 20120928
  Serious: Yes (Hospitalization, Congenital Anomaly)
  Sender: FDA-Public Use
  Company Number: US-GLAXOSMITHKLINE-A0989764A

PATIENT
  Sex: Male

DRUGS (1)
  1. PAXIL [Suspect]
     Indication: DEPRESSION
     Dosage: 60MG PER DAY
     Route: 064
     Dates: end: 19991101

REACTIONS (3)
  - SYNOSTOSIS [None]
  - FOETAL EXPOSURE DURING PREGNANCY [None]
  - CRANIOSYNOSTOSIS [None]
